FAERS Safety Report 12171507 (Version 1)
Quarter: 2016Q1

REPORT INFORMATION
  Report Type: Spontaneous
  Country: US (occurrence: US)
  Receive Date: 20160311
  Receipt Date: 20160311
  Transmission Date: 20160526
  Serious: Yes (Other)
  Sender: FDA-Public Use
  Company Number: US-TEVA-642288ACC

PATIENT
  Age: 32 Year
  Sex: Female
  Weight: 81.72 kg

DRUGS (3)
  1. PARAGARD T 380A [Suspect]
     Active Substance: COPPER
     Indication: CONTRACEPTION
     Dates: start: 20160218, end: 20160301
  2. PARAGARD T 380A [Suspect]
     Active Substance: COPPER
     Dates: start: 20160301
  3. PRENATAL VITAMINS [Concomitant]
     Active Substance: VITAMINS
     Indication: BREAST FEEDING

REACTIONS (3)
  - Amenorrhoea [Unknown]
  - Device dislocation [Recovered/Resolved]
  - Exposure during breast feeding [Unknown]

NARRATIVE: CASE EVENT DATE: 20160301
